FAERS Safety Report 11101122 (Version 4)
Quarter: 2015Q2

REPORT INFORMATION
  Report Type: Spontaneous
  Country: IL (occurrence: IL)
  Receive Date: 20150508
  Receipt Date: 20150619
  Transmission Date: 20150821
  Serious: Yes (Death)
  Sender: FDA-Public Use
  Company Number: IL-MERCK-1505ISR001487

PATIENT
  Age: 11 Year
  Sex: Male

DRUGS (2)
  1. PEGINTERFERON ALFA-2B [Suspect]
     Active Substance: PEGINTERFERON ALFA-2B
     Indication: OSTEOSARCOMA METASTATIC
     Dosage: UNK
  2. PEMBROLIZUMAB. [Suspect]
     Active Substance: PEMBROLIZUMAB
     Indication: NEOPLASM MALIGNANT
     Dosage: RECEIVED EXPERIMENTALLY THREE DOSES OF KEYTRUDA

REACTIONS (2)
  - Malignant neoplasm progression [Fatal]
  - Off label use [Unknown]
